FAERS Safety Report 25239879 (Version 2)
Quarter: 2025Q2

REPORT INFORMATION
  Report Type: Spontaneous
  Country: IE (occurrence: IE)
  Receive Date: 20250425
  Receipt Date: 20250620
  Transmission Date: 20250717
  Serious: Yes (Hospitalization)
  Sender: MYLAN
  Company Number: IE-MYLANLABS-2025M1035325

PATIENT
  Sex: Male

DRUGS (1)
  1. CLOZARIL [Suspect]
     Active Substance: CLOZAPINE
     Indication: Schizophrenia
     Dosage: BID (125 MILLIGRAM MANE AND 325 MILLIGRAM NOCTE)
     Dates: start: 20030211

REACTIONS (2)
  - Infective exacerbation of chronic obstructive airways disease [Unknown]
  - Dilated cardiomyopathy [Unknown]
